FAERS Safety Report 7464053-9 (Version None)
Quarter: 2011Q2

REPORT INFORMATION
  Report Type: 
  Country: None (occurrence: None)
  Receive Date: 20110506
  Receipt Date: 20110413
  Transmission Date: 20111010
  Serious: Yes (Other)
  Sender: FDA-Public Use
  Company Number: PHHY2011CA33026

PATIENT
  Sex: Female

DRUGS (1)
  1. DIOVAN HCT [Suspect]
     Dosage: 1 DF, QD
     Route: 048
     Dates: start: 20000101

REACTIONS (3)
  - DIZZINESS POSTURAL [None]
  - CARDIAC ASSISTANCE DEVICE USER [None]
  - CARDIAC DISORDER [None]
